FAERS Safety Report 11229059 (Version 5)
Quarter: 2019Q3

REPORT INFORMATION
  Report Type: Spontaneous
  Country: US (occurrence: US)
  Receive Date: 20150630
  Receipt Date: 20190830
  Transmission Date: 20191004
  Serious: No
  Sender: FDA-Public Use
  Company Number: US-PFIZER INC-2015209809

PATIENT
  Age: 50 Year
  Sex: Female

DRUGS (6)
  1. HYDROCHLOROTHIAZIDE. [Concomitant]
     Active Substance: HYDROCHLOROTHIAZIDE
     Dosage: 25 MG, 1X/DAY(TAKE 1 TABLET BY MOUTH EVERY MORNING)
     Route: 048
  2. CELEBREX [Concomitant]
     Active Substance: CELECOXIB
     Dosage: 200 MG, DAILY
     Route: 048
  3. POTASSIUM CHLORIDE. [Concomitant]
     Active Substance: POTASSIUM CHLORIDE
     Dosage: 20 MEQ, 1X/DAY
     Route: 048
  4. LYRICA [Suspect]
     Active Substance: PREGABALIN
     Indication: RESTLESS LEGS SYNDROME
     Dosage: 100 MG, 1X/DAY (1 PO QHS, QPM)
     Route: 048
  5. BIOTIN [Concomitant]
     Active Substance: BIOTIN
     Dosage: 1 DF, 1X/DAY
  6. ESTROVEN [Concomitant]
     Active Substance: DIETARY SUPPLEMENT
     Dosage: 2 DF, 1X/DAY (2, QD)

REACTIONS (5)
  - Limb discomfort [Unknown]
  - Off label use [Unknown]
  - Product use in unapproved indication [Unknown]
  - Crying [Unknown]
  - Insomnia [Unknown]
